FAERS Safety Report 9664008 (Version 1)
Quarter: 2013Q4

REPORT INFORMATION
  Report Type: Report from Study
  Country: CN (occurrence: CN)
  Receive Date: 20131101
  Receipt Date: 20131101
  Transmission Date: 20140711
  Serious: Yes (Death)
  Sender: FDA-Public Use
  Company Number: CN-SA-2013SA111368

PATIENT
  Age: 47 Year
  Sex: Male

DRUGS (23)
  1. FLUDARABINE PHOSPHATE [Suspect]
     Indication: GRAFT VERSUS HOST DISEASE
     Dosage: DOSE: 40 MG/M2 DAILY INTRAVENOUS INFUSION X5 DAYS ON DAYS -7, -6, -5, -4, -3.
     Route: 042
  2. BUSULFAN [Suspect]
     Indication: GRAFT VERSUS HOST DISEASE
     Dosage: -DOSE: DAILY ORAL 4 MG/M2 X 3DAYS ON DAYS -7, -6, -5.
     Route: 048
  3. CYTARABINE [Suspect]
     Indication: GRAFT VERSUS HOST DISEASE
     Dosage: DOSE: 4 G/M2 X2 DAYS ON DAY -9 AND -8. DOSE:4 GRAM(S)/SQUARE METER
     Route: 065
  4. GRANULOCYTE COLONY-STIMULATING FACTOR NOS [Concomitant]
     Route: 058
  5. CYCLOPHOSPHAMIDE [Concomitant]
  6. DAUNORUBICIN [Concomitant]
     Dosage: AS PART OF CHOP REGIMEN
  7. DAUNORUBICIN [Concomitant]
     Dosage: AS PART OF VDLP REGIMEN
  8. VINCRISTINE [Concomitant]
     Dosage: AS P[ART OF CHOP REGIMEN
  9. VINCRISTINE [Concomitant]
     Dosage: AS PART OF VDLP REGIMEN
  10. PREDNISONE [Concomitant]
     Dosage: AS PART OF CHOP REGIMEN
  11. PREDNISONE [Concomitant]
     Dosage: AS PART OF VDLP REGIMEN
  12. L-ASPARAGINASE [Concomitant]
  13. ETOPOSIDE [Concomitant]
  14. METHYLPREDNISOLONE [Concomitant]
  15. CYTARABINE [Concomitant]
  16. CISPLATIN [Concomitant]
  17. ANTINEOPLASTIC AGENTS [Concomitant]
  18. CYCLOSPORINE [Concomitant]
     Indication: PROPHYLAXIS AGAINST GRAFT VERSUS HOST DISEASE
     Dosage: STARTING FROM DAY -10
     Route: 042
  19. METHOTREXATE [Concomitant]
     Indication: PROPHYLAXIS AGAINST GRAFT VERSUS HOST DISEASE
     Dosage: ON DAY +1
     Route: 042
  20. METHOTREXATE [Concomitant]
     Indication: PROPHYLAXIS AGAINST GRAFT VERSUS HOST DISEASE
     Dosage: ON DAYS +3,+6,+11
     Route: 042
  21. METHOTREXATE [Concomitant]
     Indication: PROPHYLAXIS AGAINST GRAFT VERSUS HOST DISEASE
     Route: 048
  22. MYCOPHENOLATE MOFETIL [Concomitant]
     Indication: PROPHYLAXIS AGAINST GRAFT VERSUS HOST DISEASE
     Dosage: FROM DAY -10 TO +30
  23. MYCOPHENOLATE MOFETIL [Concomitant]
     Indication: PROPHYLAXIS AGAINST GRAFT VERSUS HOST DISEASE

REACTIONS (4)
  - Multi-organ failure [Fatal]
  - Renal failure [Fatal]
  - Bone marrow failure [Fatal]
  - Pneumonia [Fatal]
